FAERS Safety Report 7106015-7 (Version None)
Quarter: 2010Q4

REPORT INFORMATION
  Report Type: 
  Country: None (occurrence: None)
  Receive Date: 20101110
  Receipt Date: 20101025
  Transmission Date: 20110411
  Serious: Yes (Other)
  Sender: FDA-Public Use
  Company Number: DSJ-2010-19094

PATIENT

DRUGS (1)
  1. OLMESARTAN (OLMESARTAN) (TABLET) (OLMESARTAN) [Suspect]
     Indication: PRODUCT USED FOR UNKNOWN INDICATION
     Dosage: PER ORAL
     Route: 048

REACTIONS (4)
  - ASCITES [None]
  - CONDITION AGGRAVATED [None]
  - HEPATIC ENCEPHALOPATHY [None]
  - HEPATIC NEOPLASM MALIGNANT [None]
